FAERS Safety Report 4303456-8 (Version None)
Quarter: 2004Q1

REPORT INFORMATION
  Report Type: 
  Country: None (occurrence: None)
  Receive Date: 20040223
  Receipt Date: 20040209
  Transmission Date: 20041129
  Serious: No
  Sender: FDA-Public Use
  Company Number: 2004-BP-00093BP

PATIENT
  Age: 71 Year
  Sex: Male

DRUGS (2)
  1. ATROVENT [Suspect]
     Dosage: IN
     Route: 055
     Dates: start: 20031219, end: 20031220
  2. DILANTIN [Concomitant]

REACTIONS (1)
  - CONVULSION [None]
